FAERS Safety Report 25569121 (Version 1)
Quarter: 2025Q3

REPORT INFORMATION
  Report Type: Spontaneous
  Country: EU (occurrence: EU)
  Receive Date: 20250716
  Receipt Date: 20250716
  Transmission Date: 20251021
  Serious: Yes (Other)
  Sender: MYLAN
  Company Number: None

PATIENT
  Age: 84 Year
  Sex: Female
  Weight: 52.2 kg

DRUGS (4)
  1. VALPROATE [Suspect]
     Active Substance: VALPROIC ACID
     Indication: Bipolar I disorder
     Dosage: 750 MILLIGRAM, QD
     Dates: start: 20250325, end: 20250414
  2. VALPROATE [Suspect]
     Active Substance: VALPROIC ACID
     Dosage: 750 MILLIGRAM, QD
     Route: 048
     Dates: start: 20250325, end: 20250414
  3. VALPROATE [Suspect]
     Active Substance: VALPROIC ACID
     Dosage: 750 MILLIGRAM, QD
     Route: 048
     Dates: start: 20250325, end: 20250414
  4. VALPROATE [Suspect]
     Active Substance: VALPROIC ACID
     Dosage: 750 MILLIGRAM, QD
     Dates: start: 20250325, end: 20250414

REACTIONS (2)
  - Thrombocytopenia [Recovering/Resolving]
  - Condition aggravated [Recovering/Resolving]

NARRATIVE: CASE EVENT DATE: 20250331
